FAERS Safety Report 21489208 (Version 2)
Quarter: 2022Q4

REPORT INFORMATION
  Report Type: Spontaneous
  Country: US (occurrence: US)
  Receive Date: 20221021
  Receipt Date: 20221025
  Transmission Date: 20230113
  Serious: Yes (Other)
  Sender: FDA-Public Use
  Company Number: US-JNJFOC-20221027714

PATIENT
  Age: 7 Month
  Sex: Female

DRUGS (1)
  1. CHILDRENS TYLENOL [Suspect]
     Active Substance: ACETAMINOPHEN
     Indication: Product used for unknown indication
     Dosage: 5 ML (160 MG) Q4H X ABOUT 5 DAYS: OD OF 60 MG PER DOSE
     Route: 065

REACTIONS (2)
  - Hepatic failure [Recovered/Resolved]
  - Overdose [Unknown]
